FAERS Safety Report 7920010-7 (Version None)
Quarter: 2011Q4

REPORT INFORMATION
  Report Type: 
  Country: None (occurrence: None)
  Receive Date: 20111117
  Receipt Date: 20111110
  Transmission Date: 20120403
  Serious: Yes (Hospitalization, Other)
  Sender: FDA-Public Use
  Company Number: FR-BRISTOL-MYERS SQUIBB COMPANY-15963531

PATIENT
  Age: 81 Year
  Sex: Male

DRUGS (1)
  1. SPRYCEL [Suspect]
     Indication: CHRONIC MYELOID LEUKAEMIA
     Dosage: INTERRUPTED,RESTARTED ON JUN-2011;50MG PER DAY;INITIATED ON 25MAR11;23JUN11 RESTARTED 50MG/D;
     Dates: start: 20110325

REACTIONS (4)
  - RETINAL ARTERY OCCLUSION [None]
  - NEOVASCULARISATION [None]
  - PLEURAL EFFUSION [None]
  - CATARACT [None]
